FAERS Safety Report 15271664 (Version 1)
Quarter: 2018Q3

REPORT INFORMATION
  Report Type: Report from Study
  Country: US (occurrence: US)
  Receive Date: 20180813
  Receipt Date: 20180813
  Transmission Date: 20181010
  Serious: No
  Sender: FDA-Public Use
  Company Number: PHEH2018US033303

PATIENT
  Sex: Female
  Weight: 61.22 kg

DRUGS (1)
  1. COSENTYX [Suspect]
     Active Substance: SECUKINUMAB
     Indication: PUSTULAR PSORIASIS
     Dosage: 300 MG, QMO
     Route: 058
     Dates: start: 201806

REACTIONS (2)
  - Nasal dryness [Unknown]
  - Nasal discomfort [Unknown]
